FAERS Safety Report 6402645-6 (Version None)
Quarter: 2009Q4

REPORT INFORMATION
  Report Type: 
  Country: None (occurrence: None)
  Receive Date: 20091009
  Receipt Date: 20091002
  Transmission Date: 20100525
  Serious: Yes (Other)
  Sender: FDA-Public Use
  Company Number: ADR36822009

PATIENT
  Age: 56 Year
  Sex: Female

DRUGS (4)
  1. RAMIPRIL [Suspect]
     Indication: HYPERTENSION
     Dates: start: 20090527
  2. ASPIRIN [Concomitant]
  3. PLETAL [Concomitant]
  4. SIMVAHEXAL [Concomitant]

REACTIONS (1)
  - HAEMATOMA [None]
